FAERS Safety Report 13009322 (Version 1)
Quarter: 2016Q4

REPORT INFORMATION
  Report Type: Spontaneous
  Country: US (occurrence: US)
  Receive Date: 20161208
  Receipt Date: 20161208
  Transmission Date: 20170207
  Serious: No
  Sender: FDA-Public Use
  Company Number: US-PERRIGO-15US012056

PATIENT
  Sex: Female
  Weight: 62.59 kg

DRUGS (1)
  1. MINOXIDIL. [Suspect]
     Active Substance: MINOXIDIL
     Indication: ALOPECIA
     Dosage: A LITTLE LESS THAN 1 ML, BID
     Route: 061
     Dates: start: 20151015, end: 20151109

REACTIONS (3)
  - Condition aggravated [Recovered/Resolved]
  - Drug administered at inappropriate site [Recovered/Resolved]
  - Underdose [Recovered/Resolved]

NARRATIVE: CASE EVENT DATE: 20151015
